FAERS Safety Report 7554787-X (Version None)
Quarter: 2011Q2

REPORT INFORMATION
  Report Type: 
  Country: None (occurrence: None)
  Receive Date: 20110617
  Receipt Date: 20110615
  Transmission Date: 20111010
  Serious: Yes (Congenital Anomaly, Other)
  Sender: FDA-Public Use
  Company Number: GB-BRISTOL-MYERS SQUIBB COMPANY-15835267

PATIENT

DRUGS (1)
  1. ABILIFY [Suspect]

REACTIONS (4)
  - JOINT DISLOCATION [None]
  - PREMATURE BABY [None]
  - HIP DYSPLASIA [None]
  - MATERNAL DRUGS AFFECTING FOETUS [None]
